FAERS Safety Report 9411687 (Version 1)
Quarter: 2013Q3

REPORT INFORMATION
  Report Type: Spontaneous
  Country: DE (occurrence: DE)
  Receive Date: 20130722
  Receipt Date: 20130722
  Transmission Date: 20140515
  Serious: Yes (Hospitalization)
  Sender: FDA-Public Use
  Company Number: DE-JNJFOC-20130705984

PATIENT
  Sex: Male
  Weight: 105 kg

DRUGS (5)
  1. RISPERDAL [Suspect]
     Indication: PRODUCT USED FOR UNKNOWN INDICATION
     Dosage: 2 MG, 3 TABLETS OVER 7 HOURS
     Route: 048
     Dates: start: 20130530, end: 20130530
  2. MIRTAZAPIN [Suspect]
     Indication: PRODUCT USED FOR UNKNOWN INDICATION
     Dosage: 4 TABLETS OVER 7 HOURS
     Route: 048
  3. QUETIAPINE [Suspect]
     Indication: PRODUCT USED FOR UNKNOWN INDICATION
     Dosage: 5 TABLETS OVER 7 HOURS
     Route: 048
  4. CAPTOPRIL [Suspect]
     Indication: PRODUCT USED FOR UNKNOWN INDICATION
     Dosage: 2 TABLETS OVER 7 HOURS
     Route: 048
  5. CITALOPRAM [Suspect]
     Indication: PRODUCT USED FOR UNKNOWN INDICATION
     Route: 048

REACTIONS (2)
  - Suicide attempt [Recovered/Resolved]
  - Bradycardia [Recovered/Resolved]
